FAERS Safety Report 8539723-1 (Version None)
Quarter: 2012Q3

REPORT INFORMATION
  Report Type: 
  Country: None (occurrence: None)
  Receive Date: 20120726
  Receipt Date: 20110509
  Transmission Date: 20120928
  Serious: No
  Sender: FDA-Public Use
  Company Number: US-ASTRAZENECA-2010SE25978

PATIENT
  Age: 19867 Day
  Sex: Female
  Weight: 86.2 kg

DRUGS (6)
  1. SEROQUEL [Suspect]
     Indication: SCHIZOPHRENIA
     Dosage: 200 MG, ONE TABLET AT MORNING AND THREE TABLET AT NIGHT
     Route: 048
     Dates: start: 20010101, end: 20100603
  2. WELLBUTRIN [Concomitant]
  3. SEROQUEL [Suspect]
     Route: 048
     Dates: start: 20010101, end: 20100603
  4. KLONOPIN [Concomitant]
  5. SEROQUEL [Suspect]
     Indication: BIPOLAR DISORDER
     Dosage: 200 MG, ONE TABLET AT MORNING AND THREE TABLET AT NIGHT
     Route: 048
     Dates: start: 20010101, end: 20100603
  6. SEROQUEL [Suspect]
     Route: 048
     Dates: start: 20010101, end: 20100603

REACTIONS (2)
  - INSOMNIA [None]
  - DRUG DOSE OMISSION [None]
